FAERS Safety Report 9506312 (Version 1)
Quarter: 2013Q1

REPORT INFORMATION
  Report Type: Spontaneous
  Country: US (occurrence: None)
  Receive Date: 20130301
  Receipt Date: 20130301
  Transmission Date: 20140127
  Serious: No
  Sender: FDA-Public Use
  Company Number: RB-44586-2012

PATIENT
  Sex: 0

DRUGS (4)
  1. SUBOXONE [Suspect]
     Indication: DRUG DEPENDENCE
     Dosage: (DOSE DETAILS NOT PROVIDED SUIBLINGUAL)
  2. BUPRENORPHINE [Suspect]
     Indication: DRUG DEPENDENCE
     Dosage: (DOSE DETAILS NOT PROVIDED SUBLINGUAL)
     Route: 060
  3. SEROQUEL [Concomitant]
  4. WELLBUTRIN XL [Concomitant]

REACTIONS (2)
  - Pre-eclampsia [None]
  - Maternal exposure during pregnancy [None]
